FAERS Safety Report 16660098 (Version 1)
Quarter: 2019Q3

REPORT INFORMATION
  Report Type: Spontaneous
  Country: NO (occurrence: NO)
  Receive Date: 20190802
  Receipt Date: 20190802
  Transmission Date: 20191004
  Serious: Yes (Hospitalization)
  Sender: FDA-Public Use
  Company Number: NO-TEVA-2019-NO-1086162

PATIENT
  Age: 17 Year
  Sex: Female
  Weight: 56 kg

DRUGS (1)
  1. STESOLID [Suspect]
     Active Substance: DIAZEPAM
     Dosage: 5 MG GIVEN GRADUALLY WITH 10 MINUTE INTERVALS

REACTIONS (8)
  - Nausea [Recovering/Resolving]
  - Syncope [Recovering/Resolving]
  - Vomiting [Unknown]
  - Fatigue [Unknown]
  - Asthenia [Unknown]
  - Nervous system disorder [Recovering/Resolving]
  - Visual impairment [Recovering/Resolving]
  - Headache [Recovering/Resolving]

NARRATIVE: CASE EVENT DATE: 20190711
